FAERS Safety Report 18053466 (Version 1)
Quarter: 2020Q3

REPORT INFORMATION
  Report Type: Spontaneous
  Country: US (occurrence: US)
  Receive Date: 20200721
  Receipt Date: 20200721
  Transmission Date: 20201103
  Serious: Yes (Hospitalization)
  Sender: FDA-Public Use
  Company Number: None

PATIENT
  Age: 83 Year
  Sex: Female
  Weight: 77.6 kg

DRUGS (1)
  1. REMDESIVIR. [Suspect]
     Active Substance: REMDESIVIR
     Indication: COVID-19
     Route: 042
     Dates: start: 20200710, end: 20200714

REACTIONS (10)
  - Mental status changes [None]
  - Asthenia [None]
  - White blood cell count increased [None]
  - Pyrexia [None]
  - Hyperglycaemia [None]
  - Lung infiltration [None]
  - Dyspnoea [None]
  - Dysarthria [None]
  - Blood glucose decreased [None]
  - Lethargy [None]

NARRATIVE: CASE EVENT DATE: 20200715
